FAERS Safety Report 6831207-1 (Version None)
Quarter: 2010Q3

REPORT INFORMATION
  Report Type: 
  Country: None (occurrence: None)
  Receive Date: 20100712
  Receipt Date: 20100702
  Transmission Date: 20110219
  Serious: Yes (Other)
  Sender: FDA-Public Use
  Company Number: JP-JNJFOC-20100700633

PATIENT
  Age: 9 Decade
  Sex: Female

DRUGS (3)
  1. ITRIZOLE [Suspect]
     Indication: ORAL CANDIDIASIS
     Route: 048
  2. IMMUNOSUPPRESSANTS [Suspect]
     Indication: PRODUCT USED FOR UNKNOWN INDICATION
     Route: 065
  3. MULTIPLE CONCOMITANT DRUGS [Concomitant]
     Route: 065

REACTIONS (2)
  - INCORRECT DOSE ADMINISTERED [None]
  - RENAL FUNCTION TEST ABNORMAL [None]
